FAERS Safety Report 7212102-5 (Version None)
Quarter: 2010Q4

REPORT INFORMATION
  Report Type: 
  Country: None (occurrence: None)
  Receive Date: 20101227
  Receipt Date: 20101214
  Transmission Date: 20110411
  Serious: Yes (Other)
  Sender: FDA-Public Use
  Company Number: 012059

PATIENT
  Age: 88 Year
  Sex: Female

DRUGS (3)
  1. KEPPRA [Suspect]
     Indication: GRAND MAL CONVULSION
     Dosage: (500 MG BID INTRAVENOUS)
     Route: 042
  2. ACETYLSALICYLIC ACID [Concomitant]
  3. HYDROCHLOROTHIAZIDE [Concomitant]

REACTIONS (4)
  - ATRIAL FIBRILLATION [None]
  - LONG QT SYNDROME [None]
  - SINUS BRADYCARDIA [None]
  - TRICUSPID VALVE INCOMPETENCE [None]
